FAERS Safety Report 12573533 (Version 1)
Quarter: 2016Q3

REPORT INFORMATION
  Report Type: Report from Study
  Country: US (occurrence: US)
  Receive Date: 20160720
  Receipt Date: 20160720
  Transmission Date: 20161109
  Serious: Yes (Other)
  Sender: FDA-Public Use
  Company Number: US-ROCHE-1797694

PATIENT
  Age: 46 Year
  Sex: Female
  Weight: 52.5 kg

DRUGS (7)
  1. GEMCITABINE HYDROCHLORIDE. [Suspect]
     Active Substance: GEMCITABINE HYDROCHLORIDE
     Indication: PANCREATIC CARCINOMA
     Dosage: OVER 30 MINUTES ON DAYS 1, 8, AND 15
     Route: 042
     Dates: start: 20100903
  2. GEMCITABINE HYDROCHLORIDE. [Suspect]
     Active Substance: GEMCITABINE HYDROCHLORIDE
     Route: 042
     Dates: start: 20101126
  3. GEMCITABINE HYDROCHLORIDE. [Suspect]
     Active Substance: GEMCITABINE HYDROCHLORIDE
     Route: 042
     Dates: start: 20110121
  4. GEMCITABINE HYDROCHLORIDE. [Suspect]
     Active Substance: GEMCITABINE HYDROCHLORIDE
     Route: 042
     Dates: start: 20101227
  5. VISMODEGIB [Suspect]
     Active Substance: VISMODEGIB
     Indication: PANCREATIC CARCINOMA
     Dosage: QD ON DAYS 1-28
     Route: 048
     Dates: start: 20101227
  6. GEMCITABINE HYDROCHLORIDE. [Suspect]
     Active Substance: GEMCITABINE HYDROCHLORIDE
     Route: 042
     Dates: start: 20101001
  7. GEMCITABINE HYDROCHLORIDE. [Suspect]
     Active Substance: GEMCITABINE HYDROCHLORIDE
     Route: 042
     Dates: start: 20101029

REACTIONS (3)
  - Abdominal pain [Unknown]
  - Anaemia [Unknown]
  - CD4 lymphocytes decreased [Unknown]
